FAERS Safety Report 4359023-3 (Version None)
Quarter: 2004Q2

REPORT INFORMATION
  Report Type: 
  Country: None (occurrence: None)
  Receive Date: 20040517
  Receipt Date: 20040510
  Transmission Date: 20050107
  Serious: Yes (Other)
  Sender: FDA-Public Use
  Company Number: CA-GLAXOSMITHKLINE-A0510322A

PATIENT
  Sex: Male

DRUGS (1)
  1. PAXIL [Suspect]
     Indication: DEPRESSION
     Route: 048
     Dates: start: 20010801

REACTIONS (7)
  - ANXIETY [None]
  - DIZZINESS [None]
  - FEAR [None]
  - HEADACHE [None]
  - STRESS SYMPTOMS [None]
  - SUICIDAL IDEATION [None]
  - TREMOR [None]
